FAERS Safety Report 25112252 (Version 1)
Quarter: 2025Q1

REPORT INFORMATION
  Report Type: Spontaneous
  Country: US (occurrence: US)
  Receive Date: 20250324
  Receipt Date: 20250324
  Transmission Date: 20250409
  Serious: No
  Sender: UCB
  Company Number: US-UCBSA-2024007558

PATIENT
  Age: 63 Year
  Sex: Female

DRUGS (1)
  1. BRIVIACT [Suspect]
     Active Substance: BRIVARACETAM
     Indication: Epilepsy
     Dosage: 200 MILLIGRAM, 2X/DAY (BID), THERAPY STARTED: 2 YEARS AGO

REACTIONS (2)
  - Product packaging difficult to open [Unknown]
  - Overdose [Unknown]
